FAERS Safety Report 9729529 (Version 2)
Quarter: 2013Q4

REPORT INFORMATION
  Report Type: Spontaneous
  Country: US (occurrence: US)
  Receive Date: 20131204
  Receipt Date: 20131204
  Transmission Date: 20140711
  Serious: No
  Sender: FDA-Public Use
  Company Number: US-GILEAD-2009-0021652

PATIENT
  Sex: Female
  Weight: 67.13 kg

DRUGS (10)
  1. LETAIRIS [Suspect]
     Indication: PULMONARY ARTERIAL HYPERTENSION
     Route: 048
     Dates: start: 20080725
  2. TOPROL XL [Concomitant]
  3. ISOSORBIDE DN [Concomitant]
  4. SPIRIVA [Concomitant]
  5. ADVAIR [Concomitant]
  6. LEXAPRO [Concomitant]
  7. XANAX [Concomitant]
  8. AMBIEN [Concomitant]
  9. PREMPRO [Concomitant]
  10. NEXIUM [Concomitant]

REACTIONS (3)
  - Renal disorder [Unknown]
  - Kidney infection [Unknown]
  - Headache [Unknown]
